FAERS Safety Report 14665706 (Version 1)
Quarter: 2018Q1

REPORT INFORMATION
  Report Type: Spontaneous
  Country: GB (occurrence: GB)
  Receive Date: 20180321
  Receipt Date: 20180321
  Transmission Date: 20180509
  Serious: Yes (Disabling, Other)
  Sender: FDA-Public Use
  Company Number: GB-PFIZER INC-2018113562

PATIENT
  Age: 16 Year
  Sex: Male
  Weight: 105 kg

DRUGS (3)
  1. SERTRALINE HCL [Suspect]
     Active Substance: SERTRALINE HYDROCHLORIDE
     Indication: DEPRESSION
     Dosage: 100 MG, UNK
     Route: 048
     Dates: start: 20170715
  2. PROPRANOLOL [Concomitant]
     Active Substance: PROPRANOLOL HYDROCHLORIDE
     Dosage: UNK
  3. DAY AND NIGHT NURSE [Concomitant]
     Dosage: UNK

REACTIONS (5)
  - Suicidal behaviour [Not Recovered/Not Resolved]
  - Intentional self-injury [Unknown]
  - Product use in unapproved indication [Unknown]
  - Headache [Unknown]
  - Anxiety [Not Recovered/Not Resolved]
